FAERS Safety Report 4616776-4 (Version None)
Quarter: 2005Q1

REPORT INFORMATION
  Report Type: 
  Country: None (occurrence: None)
  Receive Date: 20050321
  Receipt Date: 20050308
  Transmission Date: 20050727
  Serious: Yes (Hospitalization)
  Sender: FDA-Public Use
  Company Number: 2005042452

PATIENT
  Age: 84 Year
  Sex: Male

DRUGS (6)
  1. ATARAX [Suspect]
     Indication: ILL-DEFINED DISORDER
     Dosage: 30 MG, ORAL
     Route: 048
  2. ALLOPURINOL [Suspect]
     Indication: ILL-DEFINED DISORDER
     Dosage: ORAL
     Route: 048
  3. CLAVULIN     (AMOXICILLIN TRIHYDRATE, CLAVULANATE POTASSIUM) [Suspect]
     Indication: ILL-DEFINED DISORDER
     Dosage: 3 GRAM SUBCUTANEOUS
     Route: 058
     Dates: start: 20050110, end: 20050118
  4. HEPARIN-FRACTION, SODIUM SALT       (HEPARIN-FRACTION, SODIUM SALT) [Suspect]
     Indication: ILL-DEFINED DISORDER
     Dosage: 4 KALLIKREIN INHIBITOR UNITS, SUBCUTANEOUS
     Route: 058
     Dates: end: 20050119
  5. CLOPIDOGREL BISULFATE [Suspect]
     Indication: ILL-DEFINED DISORDER
     Dosage: 75 MG, ORAL
     Route: 048
  6. BUMETANIDE [Suspect]
     Indication: ILL-DEFINED DISORDER
     Dates: end: 20050118

REACTIONS (16)
  - ACUTE GENERALISED EXANTHEMATOUS PUSTULOSIS [None]
  - CONGESTIVE CARDIOMYOPATHY [None]
  - DRUG RASH WITH EOSINOPHILIA AND SYSTEMIC SYMPTOMS [None]
  - ECZEMA [None]
  - ERYTHEMA [None]
  - EYELID OEDEMA [None]
  - FACE OEDEMA [None]
  - HYPERTROPHIC CARDIOMYOPATHY [None]
  - INFLAMMATION [None]
  - NEPHRITIS INTERSTITIAL [None]
  - RASH MACULO-PAPULAR [None]
  - RASH MORBILLIFORM [None]
  - RASH SCARLATINIFORM [None]
  - SKIN EXFOLIATION [None]
  - SKIN ULCER [None]
  - TOXIC SKIN ERUPTION [None]
